FAERS Safety Report 9122739 (Version 5)
Quarter: 2013Q2

REPORT INFORMATION
  Report Type: Spontaneous
  Country: GB (occurrence: GB)
  Receive Date: 20130227
  Receipt Date: 20130502
  Transmission Date: 20140414
  Serious: No
  Sender: FDA-Public Use
  Company Number: GB-JNJFOC-20130208429

PATIENT
  Sex: Female

DRUGS (5)
  1. DUROGESIC DTRANS [Suspect]
     Indication: PAIN
     Route: 062
     Dates: start: 20130205
  2. DUROGESIC DTRANS [Suspect]
     Indication: ANALGESIC THERAPY
     Route: 062
     Dates: start: 20130205
  3. FENTANYL [Suspect]
     Indication: PAIN
     Route: 062
  4. AMITRIPTYLINE [Concomitant]
     Indication: PAIN
  5. GABAPENTIN [Concomitant]
     Indication: PAIN

REACTIONS (3)
  - Product packaging quantity issue [Unknown]
  - Pain [Unknown]
  - Drug dose omission [Unknown]
